FAERS Safety Report 9196942 (Version 1)
Quarter: 2013Q1

REPORT INFORMATION
  Report Type: Spontaneous
  Country: US (occurrence: None)
  Receive Date: 20120709
  Receipt Date: 20120709
  Transmission Date: 20140127
  Serious: Yes (Other)
  Sender: FDA-Public Use
  Company Number: PHEH2012US002272

PATIENT
  Age: 64 Year
  Sex: Female
  Weight: 74.5 kg

DRUGS (5)
  1. GLEEVEC [Suspect]
     Indication: HYPEREOSINOPHILIC SYNDROME
     Route: 048
     Dates: start: 20120116, end: 20120201
  2. PREDNISONE (PREDNISONE) [Concomitant]
  3. Z-PAK (AZITHROMYCIN) [Concomitant]
  4. VITAMIN D (ERGOCALCIFEROL) [Concomitant]
  5. CALCIUM (CALCIUM) [Concomitant]

REACTIONS (2)
  - Swelling face [None]
  - Nausea [None]
